FAERS Safety Report 5893882-8 (Version None)
Quarter: 2008Q3

REPORT INFORMATION
  Report Type: 
  Country: None (occurrence: None)
  Receive Date: 20080923
  Receipt Date: 20071128
  Transmission Date: 20090109
  Serious: No
  Sender: FDA-Public Use
  Company Number: US-ASTRAZENECA-2007UW27212

PATIENT
  Age: 36 Year
  Sex: Female
  Weight: 54.4 kg

DRUGS (2)
  1. SEROQUEL [Suspect]
     Indication: BIPOLAR DISORDER
     Route: 048
     Dates: start: 20071127
  2. KLONOPIN [Interacting]

REACTIONS (4)
  - DRUG INTERACTION [None]
  - ILL-DEFINED DISORDER [None]
  - SEDATION [None]
  - SOMNOLENCE [None]
